FAERS Safety Report 6421358-8 (Version None)
Quarter: 2009Q4

REPORT INFORMATION
  Report Type: 
  Country: None (occurrence: None)
  Receive Date: 20091030
  Receipt Date: 20091021
  Transmission Date: 20100525
  Serious: Yes (Hospitalization)
  Sender: FDA-Public Use
  Company Number: PHHO2009DE12958

PATIENT
  Sex: Male
  Weight: 80 kg

DRUGS (3)
  1. RAD 666 RAD+TAB [Suspect]
     Indication: RENAL TRANSPLANT
     Dosage: UNK
  2. MYFORTIC [Suspect]
     Indication: RENAL TRANSPLANT
     Route: 048
  3. URBASON [Suspect]
     Indication: RENAL TRANSPLANT

REACTIONS (3)
  - CATHETER REMOVAL [None]
  - COMPLICATIONS OF TRANSPLANTED KIDNEY [None]
  - IMPAIRED HEALING [None]
